FAERS Safety Report 18621058 (Version 1)
Quarter: 2020Q4

REPORT INFORMATION
  Report Type: Report from Study
  Country: FR (occurrence: FR)
  Receive Date: 20201216
  Receipt Date: 20201216
  Transmission Date: 20210114
  Serious: Yes (Hospitalization)
  Sender: FDA-Public Use
  Company Number: FR-ROCHE-2709559

PATIENT
  Age: 57 Year
  Sex: Male
  Weight: 78 kg

DRUGS (3)
  1. ATEZOLIZUMAB. [Suspect]
     Active Substance: ATEZOLIZUMAB
     Indication: BLADDER CANCER
     Dosage: CYCLE 9 (LAST DAILY DOSE ADMINISTERED BEFORE EVENT WAS 1200 MG; CUMULATIVE DOSE 10800 MG)?DATE OF LA
     Route: 041
     Dates: start: 20200302, end: 20201109
  2. BCG [Suspect]
     Active Substance: BCG VACCINE
     Indication: BLADDER CANCER
     Dosage: ON 14/SEP/2020 RECEIVED LAST DAILY DOSE 50 ML ( CUMULATIVE DOSE 600 ML) CYCLE 12
     Route: 065
     Dates: start: 20200302
  3. JANUVIA [Concomitant]
     Active Substance: SITAGLIPTIN PHOSPHATE
     Indication: DIABETES MELLITUS
     Dates: start: 20200929

REACTIONS (1)
  - Diabetes mellitus [Recovered/Resolved]

NARRATIVE: CASE EVENT DATE: 20201104
